FAERS Safety Report 22587483 (Version 1)
Quarter: 2023Q2

REPORT INFORMATION
  Report Type: Spontaneous
  Country: US (occurrence: US)
  Receive Date: 20230612
  Receipt Date: 20230612
  Transmission Date: 20230721
  Serious: No
  Sender: FDA-Public Use
  Company Number: US-Hikma Pharmaceuticals USA Inc.-US-H14001-22-02949

PATIENT
  Sex: Female

DRUGS (2)
  1. DEXAMETHASONE [Suspect]
     Active Substance: DEXAMETHASONE
     Indication: Product used for unknown indication
     Dosage: UNKNOWN
     Route: 065
  2. TUKYSA [Suspect]
     Active Substance: TUCATINIB
     Indication: Breast cancer female
     Dosage: UNKNOWN
     Route: 065

REACTIONS (10)
  - Diarrhoea [Unknown]
  - Dyspepsia [Unknown]
  - Mobility decreased [Unknown]
  - Fall [Unknown]
  - Back injury [Unknown]
  - Back pain [Unknown]
  - Asthenia [Unknown]
  - Finger deformity [Unknown]
  - Muscular weakness [Unknown]
  - Product dose omission issue [Unknown]
